FAERS Safety Report 5116259-1 (Version None)
Quarter: 2006Q3

REPORT INFORMATION
  Report Type: 
  Country: None (occurrence: None)
  Receive Date: 20060927
  Receipt Date: 20060920
  Transmission Date: 20061208
  Serious: Yes (Death, Life-Threatening)
  Sender: FDA-Public Use
  Company Number: JP-JPN-A200603789

PATIENT
  Age: 13 Year
  Sex: Male

DRUGS (3)
  1. FLOLAN [Suspect]
     Indication: PULMONARY HYPERTENSION
     Route: 042
     Dates: start: 20010806
  2. SILDENAFIL CITRATE [Suspect]
     Indication: PULMONARY HYPERTENSION
     Route: 048
  3. DIOVAN [Concomitant]
     Route: 048

REACTIONS (3)
  - HAEMOPTYSIS [None]
  - PULMONARY HAEMORRHAGE [None]
  - SYNCOPE [None]
